FAERS Safety Report 4841507-2 (Version None)
Quarter: 2005Q4

REPORT INFORMATION
  Report Type: 
  Country: None (occurrence: None)
  Receive Date: 20051130
  Receipt Date: 20050808
  Transmission Date: 20060501
  Serious: No
  Sender: FDA-Public Use
  Company Number: 20050701252

PATIENT
  Age: 34 Year
  Sex: Female

DRUGS (4)
  1. WELLBUTRIN XL [Suspect]
     Indication: DRUG USE FOR UNKNOWN INDICATION
     Dosage: 300MG UNKNOWN
     Route: 048
  2. PEPCID COMPLETE [Suspect]
     Route: 048
     Dates: start: 20050601, end: 20050630
  3. ESTRADIOL INJ [Suspect]
     Indication: HORMONE REPLACEMENT THERAPY
     Dosage: 2MG UNKNOWN
     Route: 065
  4. EXTRA STRENGTH TYLENOL [Concomitant]
     Dosage: 1U AS REQUIRED
     Route: 065

REACTIONS (6)
  - ABDOMINAL PAIN UPPER [None]
  - DEFAECATION URGENCY [None]
  - DRUG INTERACTION [None]
  - FLATULENCE [None]
  - NAUSEA [None]
  - OVERDOSE [None]
